FAERS Safety Report 9161043 (Version 2)
Quarter: 2013Q2

REPORT INFORMATION
  Report Type: Spontaneous
  Country: CA (occurrence: CA)
  Receive Date: 20130313
  Receipt Date: 20130426
  Transmission Date: 20140414
  Serious: Yes (Hospitalization)
  Sender: FDA-Public Use
  Company Number: CA-VERTEX PHARMACEUTICALS INC.-2013-003405

PATIENT
  Age: 64 Year
  Sex: Male

DRUGS (3)
  1. INCIVEK [Suspect]
     Indication: HEPATITIS C
     Dosage: 750 MG, TID
     Route: 048
     Dates: start: 201207
  2. PEGASYS [Suspect]
     Indication: HEPATITIS C
     Dosage: 180 ?G/KG, UNK
     Route: 058
     Dates: start: 20120725, end: 20130227
  3. RIBAVIRIN [Suspect]
     Indication: HEPATITIS C
     Dosage: 1000 MG, UNK
     Route: 048
     Dates: end: 20130227

REACTIONS (5)
  - Hepatic failure [Unknown]
  - Abdominal abscess [Unknown]
  - Ascites [Unknown]
  - Abdominal distension [Unknown]
  - Drug ineffective [Not Recovered/Not Resolved]
